FAERS Safety Report 11019422 (Version 2)
Quarter: 2015Q2

REPORT INFORMATION
  Report Type: Spontaneous
  Country: US (occurrence: US)
  Receive Date: 20150412
  Receipt Date: 20150525
  Transmission Date: 20150821
  Serious: No
  Sender: FDA-Public Use
  Company Number: US-JNJFOC-20150203710

PATIENT
  Sex: Male
  Weight: 85.73 kg

DRUGS (1)
  1. LEVAQUIN [Suspect]
     Active Substance: LEVOFLOXACIN
     Indication: PROSTATIC DISORDER
     Route: 048
     Dates: start: 2004, end: 2004

REACTIONS (2)
  - Product use issue [Unknown]
  - Tendon pain [Recovered/Resolved]

NARRATIVE: CASE EVENT DATE: 2004
